FAERS Safety Report 7606186-X (Version None)
Quarter: 2011Q3

REPORT INFORMATION
  Report Type: 
  Country: None (occurrence: None)
  Receive Date: 20110705
  Receipt Date: 20110620
  Transmission Date: 20111222
  Serious: Yes (Hospitalization, Other)
  Sender: FDA-Public Use
  Company Number: 2011MA007769

PATIENT
  Age: 74 Year
  Sex: Female

DRUGS (7)
  1. ASPIRIN [Concomitant]
  2. MEMANTINE [Concomitant]
  3. LEVOTHYROXINE SODIUM [Concomitant]
  4. DONEPEZIL HCL [Concomitant]
  5. ATENOLOL [Concomitant]
  6. RISPERIDONE [Concomitant]
  7. CITALOPRAM HYDROBROMIDE [Suspect]
     Dosage: 40 MG, QD;

REACTIONS (10)
  - DISORIENTATION [None]
  - HYPERREFLEXIA [None]
  - SKIN DISORDER [None]
  - NAUSEA [None]
  - TACHYCARDIA [None]
  - BACTERIAL TEST POSITIVE [None]
  - PALLOR [None]
  - URINARY TRACT INFECTION [None]
  - SEROTONIN SYNDROME [None]
  - AGITATION [None]
